FAERS Safety Report 11019416 (Version 2)
Quarter: 2015Q2

REPORT INFORMATION
  Report Type: Spontaneous
  Country: US (occurrence: US)
  Receive Date: 20150412
  Receipt Date: 20150525
  Transmission Date: 20150821
  Serious: Yes (Other)
  Sender: FDA-Public Use
  Company Number: US-JNJFOC-20110107812

PATIENT
  Age: 65 Year
  Sex: Female

DRUGS (2)
  1. LEVAQUIN [Suspect]
     Active Substance: LEVOFLOXACIN
     Indication: RENAL STONE REMOVAL
     Route: 048
     Dates: start: 20060101, end: 20071228
  2. LEVAQUIN [Suspect]
     Active Substance: LEVOFLOXACIN
     Indication: RENAL STONE REMOVAL
     Route: 042

REACTIONS (2)
  - Injection site reaction [Recovered/Resolved]
  - Rotator cuff syndrome [Unknown]

NARRATIVE: CASE EVENT DATE: 20071204
